APPROVED DRUG PRODUCT: ISENTRESS
Active Ingredient: RALTEGRAVIR POTASSIUM
Strength: EQ 100MG BASE
Dosage Form/Route: TABLET, CHEWABLE;ORAL
Application: N203045 | Product #002
Applicant: MERCK SHARP AND DOHME LLC A SUB OF MERCK AND CO INC
Approved: Dec 21, 2011 | RLD: Yes | RS: Yes | Type: RX

PATENTS:
Patent 8771733 | Expires: Jun 2, 2030
Patent 7754731 | Expires: Mar 11, 2029
Patent 7754731*PED | Expires: Sep 11, 2029